FAERS Safety Report 7299020-1 (Version None)
Quarter: 2011Q1

REPORT INFORMATION
  Report Type: 
  Country: None (occurrence: None)
  Receive Date: 20110208
  Receipt Date: 20110125
  Transmission Date: 20110831
  Serious: Yes (Other)
  Sender: FDA-Public Use
  Company Number: 026144

PATIENT
  Sex: Female

DRUGS (6)
  1. KEPPRA [Suspect]
     Indication: EPILEPSY
     Dosage: (250 MG QD ORAL), (500 MG ORAL), (750 MG ORAL), (1500 MG ORAL), (1000 MG ORAL)
     Route: 048
     Dates: end: 20110120
  2. KEPPRA [Suspect]
     Indication: EPILEPSY
     Dosage: (250 MG QD ORAL), (500 MG ORAL), (750 MG ORAL), (1500 MG ORAL), (1000 MG ORAL)
     Route: 048
     Dates: start: 20101116, end: 20101101
  3. KEPPRA [Suspect]
     Indication: EPILEPSY
     Dosage: (250 MG QD ORAL), (500 MG ORAL), (750 MG ORAL), (1500 MG ORAL), (1000 MG ORAL)
     Route: 048
     Dates: start: 20101101, end: 20101201
  4. KEPPRA [Suspect]
     Indication: EPILEPSY
     Dosage: (250 MG QD ORAL), (500 MG ORAL), (750 MG ORAL), (1500 MG ORAL), (1000 MG ORAL)
     Route: 048
     Dates: start: 20101102, end: 20101115
  5. KEPPRA [Suspect]
     Indication: EPILEPSY
     Dosage: (250 MG QD ORAL), (500 MG ORAL), (750 MG ORAL), (1500 MG ORAL), (1000 MG ORAL)
     Route: 048
     Dates: start: 20101201
  6. PHENYTOIN [Suspect]
     Dosage: (200 MG ORAL)
     Route: 048

REACTIONS (4)
  - ANTICONVULSANT DRUG LEVEL DECREASED [None]
  - DRUG INTERACTION [None]
  - GRAND MAL CONVULSION [None]
  - STATUS EPILEPTICUS [None]
